FAERS Safety Report 24612707 (Version 2)
Quarter: 2024Q4

REPORT INFORMATION
  Report Type: Spontaneous
  Country: GB (occurrence: GB)
  Receive Date: 20241113
  Receipt Date: 20241118
  Transmission Date: 20250114
  Serious: Yes (Other)
  Sender: MYLAN
  Company Number: GB-MYLANLABS-2024M1100259

PATIENT
  Sex: Male

DRUGS (1)
  1. CLOZARIL [Suspect]
     Active Substance: CLOZAPINE
     Indication: Product used for unknown indication
     Dosage: UNK
     Route: 048
     Dates: start: 20240726

REACTIONS (5)
  - Neutropenia [Recovered/Resolved]
  - COVID-19 [Unknown]
  - White blood cell count decreased [Recovered/Resolved]
  - Eosinophil count decreased [Not Recovered/Not Resolved]
  - Haemoglobin decreased [Not Recovered/Not Resolved]

NARRATIVE: CASE EVENT DATE: 20241104
